FAERS Safety Report 15754550 (Version 1)
Quarter: 2018Q4

REPORT INFORMATION
  Report Type: Report from Study
  Country: None (occurrence: US)
  Receive Date: 20181224
  Receipt Date: 20181224
  Transmission Date: 20190205
  Serious: Yes (Hospitalization)
  Sender: FDA-Public Use
  Company Number: US-INSMED, INC.-US-INS-18-00286

PATIENT
  Sex: Male

DRUGS (2)
  1. ARIKAYCE [Suspect]
     Active Substance: AMIKACIN
     Indication: PRODUCT USED FOR UNKNOWN INDICATION
     Route: 055
  2. LAMIRA NEBULIZER SYSTEM (DEVICE) [Suspect]
     Active Substance: DEVICE

REACTIONS (3)
  - Infection [Unknown]
  - Secretion discharge [Unknown]
  - Dyspnoea [Unknown]
